FAERS Safety Report 8199692-3 (Version None)
Quarter: 2012Q1

REPORT INFORMATION
  Report Type: 
  Country: None (occurrence: None)
  Receive Date: 20120311
  Receipt Date: 20120229
  Transmission Date: 20120608
  Serious: Yes (Hospitalization)
  Sender: FDA-Public Use
  Company Number: US-ASTRAZENECA-2012SE05910

PATIENT
  Age: 66 Year
  Sex: Female

DRUGS (15)
  1. SEROQUEL XR [Suspect]
     Indication: PSYCHOTIC DISORDER
     Route: 048
     Dates: start: 20120118, end: 20120125
  2. SIMVASTATIN [Suspect]
     Route: 065
     Dates: end: 20120125
  3. ALLOPURINOL [Concomitant]
  4. SEROQUEL XR [Suspect]
     Indication: BIPOLAR DISORDER
     Route: 048
     Dates: start: 20120118, end: 20120125
  5. SEROQUEL XR [Suspect]
     Dosage: 3 HOURS BEFORE BEDTIME
     Route: 048
     Dates: start: 20120118
  6. MAGNESIUM [Concomitant]
  7. OMEPRAZOLE [Concomitant]
  8. BUPROPION HCL [Concomitant]
  9. PARICOCALIPOL [Concomitant]
  10. DOMEPIZE [Concomitant]
  11. AMLODIPINE [Concomitant]
  12. FENTANYL-100 [Concomitant]
  13. ASPIRIN [Concomitant]
  14. SEROQUEL XR [Suspect]
     Dosage: 3 HOURS BEFORE BEDTIME
     Route: 048
     Dates: start: 20120118
  15. COLACE [Concomitant]

REACTIONS (2)
  - HEPATITIS [None]
  - MENTAL STATUS CHANGES [None]
